FAERS Safety Report 7627360-2 (Version None)
Quarter: 2011Q3

REPORT INFORMATION
  Report Type: 
  Country: None (occurrence: None)
  Receive Date: 20110721
  Receipt Date: 20110708
  Transmission Date: 20111222
  Serious: Yes (Hospitalization)
  Sender: FDA-Public Use
  Company Number: US-ELI_LILLY_AND_COMPANY-US201102004962

PATIENT
  Sex: Female

DRUGS (7)
  1. FORTEO [Suspect]
     Indication: OSTEOPOROSIS
     Dosage: 20 UG, DAILY (1/D)
     Route: 065
     Dates: start: 20100901
  2. ENABLEX                            /01760402/ [Concomitant]
  3. SIMVASTATIN [Concomitant]
  4. FORTEO [Suspect]
     Dosage: 20 UG, DAILY (1/D)
     Route: 065
  5. ANALGESICS [Concomitant]
     Indication: PAIN
  6. FORTEO [Suspect]
     Dosage: 20 UG, DAILY (1/D)
     Route: 065
     Dates: end: 20110601
  7. HYZAAR [Concomitant]

REACTIONS (4)
  - BONE PAIN [None]
  - BENIGN LUNG NEOPLASM [None]
  - INJECTION SITE PAIN [None]
  - BACK PAIN [None]
